FAERS Safety Report 4740781-0 (Version None)
Quarter: 2005Q3

REPORT INFORMATION
  Report Type: 
  Country: None (occurrence: None)
  Receive Date: 20050809
  Receipt Date: 20050809
  Transmission Date: 20060218
  Serious: Yes (Hospitalization)
  Sender: FDA-Public Use
  Company Number: None

PATIENT
  Sex: Male
  Weight: 96.1626 kg

DRUGS (11)
  1. VINORELBINE [Suspect]
     Indication: NON-SMALL CELL LUNG CANCER
     Dosage: 30MG/M2, D1, 20MG/M2 D2
     Dates: start: 20050623, end: 20050630
  2. CETUXIMAB [Suspect]
     Indication: NON-SMALL CELL LUNG CANCER
     Dosage: 400MG/M2, WEEKLY, IV
     Route: 042
     Dates: start: 20050623, end: 20050707
  3. GLUCOPHAGE [Concomitant]
  4. LOVASTATIN [Concomitant]
  5. ZANTAC [Concomitant]
  6. GLIPIZIDE [Concomitant]
  7. HYDROCHLOROTHIAZIDE [Concomitant]
  8. LISINOPRIL [Concomitant]
  9. VERAPAMIL [Concomitant]
  10. ACTOS [Concomitant]
  11. CIPROFLOXACIN HCL [Concomitant]

REACTIONS (2)
  - FEBRILE NEUTROPENIA [None]
  - SINUS DISORDER [None]
